FAERS Safety Report 13863145 (Version 1)
Quarter: 2017Q3

REPORT INFORMATION
  Report Type: Spontaneous
  Country: US (occurrence: US)
  Receive Date: 20170814
  Receipt Date: 20170814
  Transmission Date: 20171127
  Serious: No
  Sender: FDA-Public Use
  Company Number: US-ELI_LILLY_AND_COMPANY-US201708004378

PATIENT
  Sex: Female

DRUGS (2)
  1. HUMULIN R U-500 [Suspect]
     Active Substance: INSULIN HUMAN
     Indication: DIABETES MELLITUS
     Dosage: UNK
     Route: 058
  2. HUMALOG [Suspect]
     Active Substance: INSULIN LISPRO
     Indication: PRODUCT USED FOR UNKNOWN INDICATION
     Route: 065

REACTIONS (7)
  - Musculoskeletal stiffness [Recovering/Resolving]
  - Myalgia [Recovering/Resolving]
  - Alopecia [Recovering/Resolving]
  - Blood glucose abnormal [Unknown]
  - Insulin resistant diabetes [Recovering/Resolving]
  - Drug ineffective [Recovering/Resolving]
  - Blood potassium decreased [Recovering/Resolving]
